FAERS Safety Report 6460718-6 (Version None)
Quarter: 2009Q4

REPORT INFORMATION
  Report Type: 
  Country: None (occurrence: None)
  Receive Date: 20091130
  Receipt Date: 20091120
  Transmission Date: 20100525
  Serious: Yes (Other)
  Sender: FDA-Public Use
  Company Number: IN-ASTRAZENECA-2009SE25050

PATIENT
  Age: 44 Year
  Sex: Male
  Weight: 77 kg

DRUGS (3)
  1. CRESTOR [Suspect]
     Route: 048
     Dates: start: 20090910, end: 20091025
  2. METOPROLOL [Concomitant]
  3. RAMIPRIL [Concomitant]

REACTIONS (3)
  - GOUT [None]
  - HYPERURICAEMIA [None]
  - NEPHROPATHY [None]
